FAERS Safety Report 19598050 (Version 2)
Quarter: 2022Q1

REPORT INFORMATION
  Report Type: Spontaneous
  Country: US (occurrence: US)
  Receive Date: 20210722
  Receipt Date: 20220204
  Transmission Date: 20220424
  Serious: No
  Sender: FDA-Public Use
  Company Number: US-PFIZER INC-2020296649

PATIENT
  Age: 47 Year
  Sex: Male
  Weight: 82.3 kg

DRUGS (4)
  1. LYRICA [Suspect]
     Active Substance: PREGABALIN
     Dosage: 50 MG, 3X/DAY (INCREASE GRADUALLY AS INSTRUCTED)
     Route: 048
     Dates: start: 20200730
  2. LYRICA [Suspect]
     Active Substance: PREGABALIN
     Dosage: 50 MG, 3X/DAY (INCREASE GRADUALLY AS INSTRUCTED)
     Route: 048
     Dates: start: 20201112
  3. LYRICA [Suspect]
     Active Substance: PREGABALIN
     Dosage: 50 MG, 3X/DAY (INCREASE GRADUALLY AS INSTRUCTED)
     Route: 048
     Dates: start: 20201223
  4. LYRICA [Suspect]
     Active Substance: PREGABALIN
     Dosage: 50 MG, 3X/DAY (INCREASE GRADUALLY AS INSTRUCTED)
     Route: 048
     Dates: start: 20210603

REACTIONS (1)
  - Alanine aminotransferase decreased [Unknown]

NARRATIVE: CASE EVENT DATE: 20210427
